FAERS Safety Report 7151105-6 (Version None)
Quarter: 2010Q4

REPORT INFORMATION
  Report Type: 
  Country: None (occurrence: None)
  Receive Date: 20101210
  Receipt Date: 20101201
  Transmission Date: 20110411
  Serious: Yes (Other)
  Sender: FDA-Public Use
  Company Number: FR-ASTRAZENECA-2010SE56953

PATIENT
  Age: 62 Year
  Sex: Female

DRUGS (2)
  1. MOPRAL [Suspect]
     Indication: GASTRIC ULCER
     Route: 048
     Dates: end: 20101130
  2. MOPRAL [Suspect]
     Indication: GASTROOESOPHAGEAL REFLUX DISEASE
     Route: 048
     Dates: end: 20101130

REACTIONS (1)
  - APLASIA PURE RED CELL [None]
